FAERS Safety Report 9246304 (Version 2)
Quarter: 2013Q2

REPORT INFORMATION
  Report Type: Report from Study
  Country: US (occurrence: US)
  Receive Date: 20130422
  Receipt Date: 20130508
  Transmission Date: 20140414
  Serious: Yes (Life-Threatening, Hospitalization, Disabling, Other)
  Sender: FDA-Public Use
  Company Number: US-ACTELION-A-US2013-82009

PATIENT
  Age: 2 Year
  Sex: Female

DRUGS (1)
  1. TRACLEER [Suspect]
     Indication: PULMONARY ARTERIAL HYPERTENSION
     Dosage: 15.6 MG, BID
     Route: 048

REACTIONS (6)
  - Cardiac operation [Recovered/Resolved]
  - Cerebral infarction [Recovered/Resolved]
  - Post procedural haemorrhage [Recovered/Resolved]
  - Transient ischaemic attack [Recovered/Resolved]
  - Hemiparesis [Recovered/Resolved]
  - Nodal rhythm [Unknown]
